FAERS Safety Report 16780592 (Version 1)
Quarter: 2019Q3

REPORT INFORMATION
  Report Type: Spontaneous
  Country: US (occurrence: US)
  Receive Date: 20190906
  Receipt Date: 20190906
  Transmission Date: 20191005
  Serious: No
  Sender: FDA-Public Use
  Company Number: US-SA-2019SA245905

PATIENT
  Age: 14 Year
  Sex: Female

DRUGS (9)
  1. DUPIXENT [Suspect]
     Active Substance: DUPILUMAB
     Indication: DERMATITIS ATOPIC
     Dosage: 300 MG, QOW
     Route: 058
     Dates: start: 20190807
  2. ALBUTEROL [SALBUTAMOL] [Concomitant]
     Active Substance: ALBUTEROL
  3. TRIAMCINOLON [TRIAMCINOLONE] [Concomitant]
  4. CLARITIN [Concomitant]
     Active Substance: LORATADINE
  5. BENZOYL PEROXIDE. [Concomitant]
     Active Substance: BENZOYL PEROXIDE
  6. CLOBETASOL [Concomitant]
     Active Substance: CLOBETASOL
  7. PROTOPIC [Concomitant]
     Active Substance: TACROLIMUS
  8. CLINDAMYCIN. [Concomitant]
     Active Substance: CLINDAMYCIN
  9. VITAMIN D [VITAMIN D NOS] [Concomitant]
     Active Substance: VITAMIN D NOS

REACTIONS (2)
  - Abdominal discomfort [Not Recovered/Not Resolved]
  - Injection site swelling [Recovered/Resolved]

NARRATIVE: CASE EVENT DATE: 2019
